FAERS Safety Report 9936722 (Version 1)
Quarter: 2014Q1

REPORT INFORMATION
  Report Type: Spontaneous
  Country: US (occurrence: US)
  Receive Date: 20140228
  Receipt Date: 20140228
  Transmission Date: 20141002
  Serious: No
  Sender: FDA-Public Use
  Company Number: US-B.I. PHARMACEUTICALS,INC./RIDGEFIELD-2014-BI-08782BP

PATIENT
  Age: 68 Year
  Sex: Female
  Weight: 90 kg

DRUGS (6)
  1. SPIRIVA [Suspect]
     Indication: CHRONIC OBSTRUCTIVE PULMONARY DISEASE
     Dosage: 18 MCG
     Route: 055
     Dates: start: 2013
  2. SPIRIVA [Suspect]
     Dosage: 18 MCG
     Route: 048
     Dates: start: 2013
  3. DIGOXIN [Concomitant]
     Indication: CARDIAC DISORDER
     Dosage: STRENGTH: 0.125; DAILY DOSE: 0.125
     Route: 048
  4. COREG [Concomitant]
     Indication: CARDIAC DISORDER
     Dosage: STRENGTH: 12.5; DAILY DOSE: 12.5
     Route: 048
  5. COZAAR [Concomitant]
     Indication: CARDIAC DISORDER
     Dosage: 50 MG
     Route: 048
  6. VITAMIN D [Concomitant]
     Dosage: 2000 U
     Route: 048

REACTIONS (2)
  - Weight increased [Not Recovered/Not Resolved]
  - Incorrect route of drug administration [Recovered/Resolved]
